FAERS Safety Report 6228070-9 (Version None)
Quarter: 2009Q2

REPORT INFORMATION
  Report Type: 
  Country: None (occurrence: None)
  Receive Date: 20090612
  Receipt Date: 20090602
  Transmission Date: 20091009
  Serious: Yes (Disabling)
  Sender: FDA-Public Use
  Company Number: US-MERCK-0712USA08197

PATIENT
  Age: 63 Year
  Sex: Female

DRUGS (2)
  1. FOSAMAX [Suspect]
     Indication: OSTEOPOROSIS
     Route: 048
     Dates: start: 20010101, end: 20060101
  2. HORMONES (UNSPECIFIED) [Concomitant]
     Route: 065
     Dates: start: 19800101, end: 20010101

REACTIONS (14)
  - ABDOMINAL PAIN [None]
  - ANXIETY [None]
  - ASTHENIA [None]
  - BLOOD CHOLESTEROL INCREASED [None]
  - BREAST MASS [None]
  - DEPRESSION [None]
  - FAILURE OF IMPLANT [None]
  - GASTRITIS [None]
  - HAEMATEMESIS [None]
  - HEADACHE [None]
  - HYPERLIPIDAEMIA [None]
  - ORAL INFECTION [None]
  - POLLAKIURIA [None]
  - RHINITIS ALLERGIC [None]
